FAERS Safety Report 8291211-6 (Version None)
Quarter: 2012Q2

REPORT INFORMATION
  Report Type: 
  Country: None (occurrence: None)
  Receive Date: 20120417
  Receipt Date: 20120410
  Transmission Date: 20120825
  Serious: Yes (Hospitalization)
  Sender: FDA-Public Use
  Company Number: US-BAYER-2011-087338

PATIENT
  Age: 36 Year
  Sex: Female
  Weight: 78.912 kg

DRUGS (8)
  1. PHENERGAN HCL [Concomitant]
     Indication: NAUSEA
     Dosage: UNK
     Dates: start: 20060906
  2. ZOLOFT [Concomitant]
     Indication: ANXIETY
     Dosage: UNK
     Route: 048
     Dates: start: 20040101, end: 20060101
  3. LORTAB [Concomitant]
     Indication: SCIATICA
     Dosage: UNK
     Route: 048
     Dates: start: 20060906
  4. CYMBALTA [Concomitant]
     Indication: ANXIETY
     Dosage: UNK
     Dates: start: 20060101
  5. YAZ [Suspect]
     Dosage: UNK
     Route: 048
     Dates: start: 20060701, end: 20060925
  6. ZITHROMAX [Concomitant]
     Route: 048
  7. MEDROL [Concomitant]
     Indication: PLEURISY
     Dosage: UNK
     Route: 048
     Dates: start: 20060914
  8. ZOLOFT [Concomitant]
     Dosage: UNK
     Dates: start: 20040101, end: 20060101

REACTIONS (9)
  - PULMONARY INFARCTION [None]
  - LUNG INFILTRATION [None]
  - INJURY [None]
  - EMOTIONAL DISTRESS [None]
  - ANXIETY [None]
  - PULMONARY EMBOLISM [None]
  - PAIN [None]
  - GENERAL PHYSICAL HEALTH DETERIORATION [None]
  - FEAR [None]
